FAERS Safety Report 7013774-0 (Version None)
Quarter: 2010Q3

REPORT INFORMATION
  Report Type: 
  Country: None (occurrence: None)
  Receive Date: 20100924
  Receipt Date: 20100916
  Transmission Date: 20110219
  Serious: Yes (Other)
  Sender: FDA-Public Use
  Company Number: US-AMGEN-QUU438891

PATIENT
  Age: 52 Year
  Sex: Female

DRUGS (6)
  1. NPLATE [Suspect]
     Indication: IDIOPATHIC THROMBOCYTOPENIC PURPURA
     Dates: start: 20090928
  2. SINGULAIR [Concomitant]
  3. CLARITIN [Concomitant]
  4. LISINOPRIL [Concomitant]
  5. GLYBURIDE [Concomitant]
  6. METFORMIN [Concomitant]

REACTIONS (1)
  - THERAPEUTIC RESPONSE DECREASED [None]
